FAERS Safety Report 12679923 (Version 5)
Quarter: 2018Q1

REPORT INFORMATION
  Report Type: Spontaneous
  Country: US (occurrence: US)
  Receive Date: 20160824
  Receipt Date: 20180110
  Transmission Date: 20180508
  Serious: Yes (Hospitalization, Other)
  Sender: FDA-Public Use
  Company Number: US-TEVA-686513USA

PATIENT
  Age: 54 Year
  Sex: Female

DRUGS (9)
  1. GEMER [Concomitant]
     Active Substance: GLIMEPIRIDE\METFORMIN
  2. ASPIRIN. [Concomitant]
     Active Substance: ASPIRIN
  3. GLIMEPIRIDE. [Suspect]
     Active Substance: GLIMEPIRIDE
     Indication: TYPE 2 DIABETES MELLITUS
     Route: 048
     Dates: start: 201509, end: 20151012
  4. HUMALOG [Concomitant]
     Active Substance: INSULIN LISPRO
  5. PRAVASTATIN. [Concomitant]
     Active Substance: PRAVASTATIN
  6. METOPROLOL. [Concomitant]
     Active Substance: METOPROLOL
  7. LISINOPRIL. [Concomitant]
     Active Substance: LISINOPRIL
  8. LATANOPROST. [Concomitant]
     Active Substance: LATANOPROST
  9. LEVEMIR [Concomitant]
     Active Substance: INSULIN DETEMIR

REACTIONS (7)
  - Hypoglycaemia [Recovered/Resolved]
  - Renal failure [Recovered/Resolved]
  - Adverse event [Unknown]
  - Hyponatraemia [Recovered/Resolved]
  - Apparent death [Recovered/Resolved]
  - Blood glucose decreased [Unknown]
  - Unresponsive to stimuli [Recovered/Resolved]

NARRATIVE: CASE EVENT DATE: 20151012
